FAERS Safety Report 26150515 (Version 1)
Quarter: 2025Q4

REPORT INFORMATION
  Report Type: Spontaneous
  Country: EU (occurrence: EU)
  Receive Date: 20251212
  Receipt Date: 20251212
  Transmission Date: 20260118
  Serious: Yes (Other)
  Sender: JOHNSON AND JOHNSON
  Company Number: None

PATIENT
  Age: 5 Year
  Sex: Male
  Weight: 31 kg

DRUGS (2)
  1. RISPERDAL [Suspect]
     Active Substance: RISPERIDONE
     Indication: Product used for unknown indication
     Dosage: 1.25 MG INSTEAD OF 0.35 MG
  2. RISPERDAL [Suspect]
     Active Substance: RISPERIDONE

REACTIONS (3)
  - Somnolence [Not Recovered/Not Resolved]
  - Overdose [Not Recovered/Not Resolved]
  - Incorrect dose administered [Unknown]
